FAERS Safety Report 10160503 (Version 2)
Quarter: 2014Q2

REPORT INFORMATION
  Report Type: Spontaneous
  Country: SE (occurrence: SE)
  Receive Date: 20140508
  Receipt Date: 20140606
  Transmission Date: 20141212
  Serious: Yes (Hospitalization, Other)
  Sender: FDA-Public Use
  Company Number: SE-JNJFOC-20140503149

PATIENT
  Age: 40 Year
  Sex: Male

DRUGS (12)
  1. TRANDOLAN [Suspect]
     Indication: PAIN
     Route: 065
     Dates: start: 200902
  2. TRANDOLAN [Suspect]
     Indication: PAIN
     Dosage: ONE DOSE
     Route: 065
     Dates: start: 20090224
  3. TRANDOLAN [Suspect]
     Indication: HEADACHE
     Dosage: ONE DOSE
     Route: 065
     Dates: start: 20090224
  4. TRANDOLAN [Suspect]
     Indication: HEADACHE
     Route: 065
     Dates: start: 200902
  5. VOXRA [Interacting]
     Indication: DEPRESSION
     Route: 048
  6. VOXRA [Interacting]
     Indication: DEPRESSION
     Route: 048
     Dates: start: 20090224, end: 20090224
  7. ZOMIG [Concomitant]
     Indication: PRODUCT USED FOR UNKNOWN INDICATION
     Route: 065
  8. KESTINE [Concomitant]
     Indication: PRODUCT USED FOR UNKNOWN INDICATION
     Route: 065
  9. CITODON [Concomitant]
     Indication: PRODUCT USED FOR UNKNOWN INDICATION
     Route: 065
  10. KETOPROFEN [Concomitant]
     Indication: PRODUCT USED FOR UNKNOWN INDICATION
     Route: 065
  11. ALIMEMAZINE TARTRATE [Concomitant]
     Indication: PRODUCT USED FOR UNKNOWN INDICATION
     Route: 065
  12. OMEPRAZOLE [Concomitant]
     Indication: PRODUCT USED FOR UNKNOWN INDICATION
     Route: 065

REACTIONS (10)
  - Convulsion [Recovered/Resolved]
  - Feeling abnormal [Recovered/Resolved]
  - Body temperature decreased [Recovered/Resolved]
  - Contusion [Recovered/Resolved]
  - Scratch [Recovered/Resolved]
  - Ear haemorrhage [Recovered/Resolved]
  - Accidental overdose [Recovered/Resolved]
  - Drug interaction [Recovered/Resolved]
  - Somnolence [Recovered/Resolved]
  - Amnesia [Not Recovered/Not Resolved]
